FAERS Safety Report 5036248-5 (Version None)
Quarter: 2006Q2

REPORT INFORMATION
  Report Type: 
  Country: None (occurrence: None)
  Receive Date: 20060601
  Receipt Date: 20060428
  Transmission Date: 20061013
  Serious: No
  Sender: FDA-Public Use
  Company Number: US200605000064

PATIENT
  Age: 61 Year
  Sex: Male

DRUGS (3)
  1. CYMBALTA [Suspect]
     Indication: BACK PAIN
     Dosage: 30 MG
     Dates: start: 20060421
  2. REQUIP (ROPINIPROLE HYDROCHLORIDE) [Concomitant]
  3. NEURONTIN [Concomitant]

REACTIONS (4)
  - DIARRHOEA [None]
  - INFLUENZA LIKE ILLNESS [None]
  - NAUSEA [None]
  - STOMACH DISCOMFORT [None]
